FAERS Safety Report 12089171 (Version 1)
Quarter: 2016Q1

REPORT INFORMATION
  Report Type: Spontaneous
  Country: US (occurrence: None)
  Receive Date: 20160217
  Receipt Date: 20160217
  Transmission Date: 20160526
  Serious: Yes (Disabling)
  Sender: FDA-Public Use
  Company Number: None

PATIENT
  Age: 56 Year
  Sex: Female
  Weight: 122.47 kg

DRUGS (8)
  1. BACLOFEN. [Concomitant]
     Active Substance: BACLOFEN
  2. LEVETIRACETAM. [Suspect]
     Active Substance: LEVETIRACETAM
     Indication: SEIZURE
     Dosage: 1 AND 1/2 PILLS TWICE DAILY TAKEN BY MOUTH
     Route: 048
     Dates: start: 20140101, end: 20150218
  3. TRIAMCINOLONE [Concomitant]
     Active Substance: TRIAMCINOLONE
  4. TIZANDINE (TIZANDINE HYDROCHLORIDE) [Concomitant]
     Active Substance: TIZANIDINE HYDROCHLORIDE
  5. LAMOTRIGINE. [Concomitant]
     Active Substance: LAMOTRIGINE
  6. MODAFINIL. [Concomitant]
     Active Substance: MODAFINIL
  7. GLATIRAMER [Concomitant]
     Active Substance: GLATIRAMER
  8. DULOXETINE. [Concomitant]
     Active Substance: DULOXETINE

REACTIONS (8)
  - Depression [None]
  - Feeling abnormal [None]
  - Scar [None]
  - Activities of daily living impaired [None]
  - Pain [None]
  - Impaired healing [None]
  - Fatigue [None]
  - Onychoclasis [None]

NARRATIVE: CASE EVENT DATE: 20150201
